FAERS Safety Report 16449338 (Version 2)
Quarter: 2019Q2

REPORT INFORMATION
  Report Type: Spontaneous
  Country: US (occurrence: US)
  Receive Date: 20190619
  Receipt Date: 20190628
  Transmission Date: 20190711
  Serious: Yes (Other)
  Sender: FDA-Public Use
  Company Number: US-DRREDDYS-USA/USA/19/0111085

PATIENT
  Age: 58 Year
  Sex: Female

DRUGS (9)
  1. TACROLIMUS. [Suspect]
     Active Substance: TACROLIMUS
     Route: 065
     Dates: start: 201110
  2. MYCOPHENOLATE MOFETIL. [Suspect]
     Active Substance: MYCOPHENOLATE MOFETIL
     Dosage: INCREASES IN HER IMMUNOSUPPRESSIVE THERAPY
     Route: 065
     Dates: end: 201608
  3. PREDNISONE. [Suspect]
     Active Substance: PREDNISONE
     Dosage: INCREASE THE DOSE
     Dates: start: 201512
  4. TACROLIMUS. [Suspect]
     Active Substance: TACROLIMUS
     Indication: IMMUNOSUPPRESSANT DRUG THERAPY
     Dosage: INCREASES IN HER IMMUNOSUPPRESSIVE THERAPY
     Route: 065
  5. ALPHA-1-PROTEINASE INHIBITOR, HUMAN [Concomitant]
     Indication: PRODUCT USED FOR UNKNOWN INDICATION
     Dosage: INCREASE THE DOSE
     Route: 065
     Dates: start: 201512
  6. ALPHA-1-PROTEINASE INHIBITOR, HUMAN [Concomitant]
     Route: 065
     Dates: start: 201110
  7. PREDNISONE. [Suspect]
     Active Substance: PREDNISONE
     Dosage: INTERMITTENT STEROIDS
     Dates: start: 201110
  8. MYCOPHENOLATE MOFETIL. [Suspect]
     Active Substance: MYCOPHENOLATE MOFETIL
     Indication: IMMUNOSUPPRESSANT DRUG THERAPY
     Dosage: INCREASES IN HER IMMUNOSUPPRESSIVE THERAPY
     Route: 065
     Dates: start: 201110
  9. PREDNISONE. [Suspect]
     Active Substance: PREDNISONE
     Indication: IMMUNOSUPPRESSANT DRUG THERAPY
     Dosage: INCREASES IN HER IMMUNOSUPPRESSIVE THERAPY
     Dates: end: 201512

REACTIONS (2)
  - Pleomorphism [Recovering/Resolving]
  - Sarcoma of skin [Recovering/Resolving]

NARRATIVE: CASE EVENT DATE: 201607
